FAERS Safety Report 11811221 (Version 1)
Quarter: 2015Q4

REPORT INFORMATION
  Report Type: Spontaneous
  Country: CN (occurrence: CN)
  Receive Date: 20151208
  Receipt Date: 20151208
  Transmission Date: 20160305
  Serious: Yes (Death)
  Sender: FDA-Public Use
  Company Number: CN-PFIZER INC-2014139831

PATIENT
  Age: 50 Year
  Sex: Male
  Weight: 59 kg

DRUGS (3)
  1. CELEBREX [Suspect]
     Active Substance: CELECOXIB
     Indication: RHEUMATOID ARTHRITIS
     Dosage: 200 MG, 2X/DAY
     Route: 048
     Dates: start: 20130411, end: 20130415
  2. RUIBOTE [Suspect]
     Active Substance: RABEPRAZOLE SODIUM
     Indication: RHEUMATOID ARTHRITIS
     Dosage: 10 MG, 2X/DAY
     Route: 048
     Dates: start: 20130411, end: 20130420
  3. PANAX NOTOGINSENG (XUESHUANGTONG) [Suspect]
     Active Substance: PANAX NOTOGINSENG ROOT
     Indication: RHEUMATOID ARTHRITIS
     Dosage: 250 MG, 1X/DAY
     Route: 048
     Dates: start: 20130411, end: 20130413

REACTIONS (4)
  - Bone marrow failure [Fatal]
  - Aspartate aminotransferase increased [None]
  - Hepatic enzyme increased [Fatal]
  - Alanine aminotransferase increased [None]

NARRATIVE: CASE EVENT DATE: 20130413
